FAERS Safety Report 20055740 (Version 1)
Quarter: 2021Q4

REPORT INFORMATION
  Report Type: Spontaneous
  Country: IT (occurrence: IT)
  Receive Date: 20211110
  Receipt Date: 20211110
  Transmission Date: 20220303
  Serious: Yes (Hospitalization)
  Sender: FDA-Public Use
  Company Number: None

PATIENT
  Sex: Male

DRUGS (2)
  1. ASPIRIN [Concomitant]
     Active Substance: ASPIRIN
     Indication: Product used for unknown indication
  2. PRADAXA [Suspect]
     Active Substance: DABIGATRAN ETEXILATE MESYLATE
     Indication: Atrial fibrillation
     Dosage: HARD CAPSULES
     Route: 048
     Dates: start: 20170420, end: 20211028

REACTIONS (3)
  - Haematemesis [Recovering/Resolving]
  - Procoagulant therapy [Unknown]
  - Procoagulant therapy [Unknown]

NARRATIVE: CASE EVENT DATE: 20211028
